FAERS Safety Report 17893643 (Version 1)
Quarter: 2020Q2

REPORT INFORMATION
  Report Type: Report from Study
  Country: US (occurrence: US)
  Receive Date: 20200615
  Receipt Date: 20200615
  Transmission Date: 20200714
  Serious: Yes (Hospitalization, Other)
  Sender: FDA-Public Use
  Company Number: US-AUROBINDO-AUR-APL-2020-028084

PATIENT
  Weight: 2.91 kg

DRUGS (11)
  1. HYDROMORPHONE [Suspect]
     Active Substance: HYDROMORPHONE
     Indication: PRODUCT USED FOR UNKNOWN INDICATION
     Dosage: 140 MICROGRAM/HOUR (EPIDURAL)
     Route: 064
  2. IBUPROFEN. [Suspect]
     Active Substance: IBUPROFEN
     Indication: BREAKTHROUGH PAIN
     Dosage: 3200 MILLIGRAM, DAILY
     Route: 064
  3. HYDROMORPHONE [Suspect]
     Active Substance: HYDROMORPHONE
     Dosage: 20 MICROGRAM, 30-MINS LOCKOUT (PATIENT-CONTROLLED DOSE)
     Route: 062
  4. MORPHINE [Suspect]
     Active Substance: MORPHINE
     Indication: PRODUCT USED FOR UNKNOWN INDICATION
     Dosage: 2 MILLIGRAM
     Route: 064
  5. OXYCODONE [Suspect]
     Active Substance: OXYCODONE
     Indication: BREAKTHROUGH PAIN
     Dosage: 2.5 MILLIGRAM, DAILY
     Route: 064
  6. METHADONE [Suspect]
     Active Substance: METHADONE HYDROCHLORIDE
     Dosage: 190 MILLIGRAM, DAILY
     Route: 064
  7. METHADONE [Suspect]
     Active Substance: METHADONE HYDROCHLORIDE
     Indication: PRODUCT USED FOR UNKNOWN INDICATION
     Dosage: 160 MILLIGRAM, DAILY
     Route: 064
  8. ROPIVACAINE HYDROCHLORIDE 0.5% [Suspect]
     Active Substance: ROPIVACAINE HYDROCHLORIDE
     Indication: PRODUCT USED FOR UNKNOWN INDICATION
     Dosage: 25 MILLILITER (INCREMENTAL DOSE)
     Route: 064
  9. ACETAMINOPHEN. [Suspect]
     Active Substance: ACETAMINOPHEN
     Indication: BREAKTHROUGH PAIN
     Dosage: 650 MILLIGRAM, DAILY
     Route: 064
  10. FENTANYL. [Suspect]
     Active Substance: FENTANYL
     Indication: PRODUCT USED FOR UNKNOWN INDICATION
     Dosage: 85 MICROGRAM
     Route: 064
  11. KETOROLAC TROMETHAMINE. [Suspect]
     Active Substance: KETOROLAC TROMETHAMINE
     Indication: BREAKTHROUGH PAIN
     Dosage: AS NEEDED (120)
     Route: 064

REACTIONS (3)
  - Foetal exposure during pregnancy [Unknown]
  - Off label use [Unknown]
  - Drug withdrawal syndrome neonatal [Unknown]
